FAERS Safety Report 23707154 (Version 2)
Quarter: 2024Q2

REPORT INFORMATION
  Report Type: Report from Study
  Country: ES (occurrence: ES)
  Receive Date: 20240404
  Receipt Date: 20240408
  Transmission Date: 20240715
  Serious: Yes (Death, Hospitalization, Disabling, Other)
  Sender: FDA-Public Use
  Company Number: ES-SA-2024SA102989

PATIENT
  Age: 61 Year
  Sex: Female
  Weight: 43 kg

DRUGS (5)
  1. BELUMOSUDIL MESYLATE [Suspect]
     Active Substance: BELUMOSUDIL MESYLATE
     Dosage: 200 MG, QD
  2. MARIBAVIR [Concomitant]
     Active Substance: MARIBAVIR
     Indication: Cytomegalovirus infection
     Dosage: 400 MG, BID
     Route: 048
     Dates: start: 20230902, end: 20231107
  3. RUXOLITINIB [Concomitant]
     Active Substance: RUXOLITINIB
     Indication: Chronic graft versus host disease
     Dosage: 10 MG, BID
     Route: 048
     Dates: start: 20230726, end: 20230913
  4. TACROLIMUS [Concomitant]
     Active Substance: TACROLIMUS
     Indication: Chronic graft versus host disease
     Dosage: 1 MG, BID
     Route: 048
     Dates: start: 20230810, end: 20230913
  5. ENOXAPARIN [Concomitant]
     Active Substance: ENOXAPARIN
     Indication: Pulmonary embolism
     Dosage: 60 MG, BID
     Route: 042
     Dates: start: 20230921, end: 20231107

REACTIONS (5)
  - Cytomegalovirus infection reactivation [Fatal]
  - Pulmonary thrombosis [Fatal]
  - Dyspnoea [Fatal]
  - Hypoxia [Fatal]
  - Forced expiratory volume decreased [Fatal]

NARRATIVE: CASE EVENT DATE: 20230101
